FAERS Safety Report 18961566 (Version 1)
Quarter: 2021Q1

REPORT INFORMATION
  Report Type: Spontaneous
  Country: DE (occurrence: DE)
  Receive Date: 20210303
  Receipt Date: 20210303
  Transmission Date: 20210420
  Serious: Yes (Hospitalization)
  Sender: FDA-Public Use
  Company Number: DE-TEVA-2021-DE-1884315

PATIENT
  Age: 10 Year
  Sex: Female
  Weight: 41 kg

DRUGS (5)
  1. CETIRIZIN [Concomitant]
     Active Substance: CETIRIZINE HYDROCHLORIDE
     Indication: DERMATITIS ALLERGIC
     Dosage: 5MG
     Route: 048
     Dates: start: 20190615, end: 20190615
  2. AMOXICILLIN?RATIOPHARM 250MG/5ML [Suspect]
     Active Substance: AMOXICILLIN
     Indication: OTITIS MEDIA
     Dosage: DAILY DOSE: 1950 MG MILLGRAM(S) EVERY DAYS 3 SEPARATED DOSES
     Route: 048
     Dates: start: 20190612, end: 20190615
  3. PREDNISOLON [Concomitant]
     Active Substance: PREDNISOLONE
     Indication: DERMATITIS ALLERGIC
     Route: 048
     Dates: start: 20190615, end: 20190615
  4. AMOXICILLIN 1 A PHARMA 500MG/5ML [Suspect]
     Active Substance: AMOXICILLIN
     Indication: OTITIS MEDIA
     Dosage: DAILY DOSE: 1950 MG MILLGRAM(S) EVERY DAYS 3 SEPARATED DOSES
     Route: 048
     Dates: start: 20190608, end: 20190612
  5. FENISTIL [Concomitant]
     Active Substance: DIMETHINDENE
     Indication: DERMATITIS ALLERGIC
     Route: 048
     Dates: start: 20190615, end: 20190615

REACTIONS (7)
  - Respiratory disorder [Recovered/Resolved]
  - Throat tightness [Recovered/Resolved]
  - Oropharyngeal pain [Recovered/Resolved]
  - Headache [Recovered/Resolved]
  - Urticaria [Recovered/Resolved]
  - Peripheral swelling [Recovered/Resolved]
  - Hypersensitivity [Recovered/Resolved]

NARRATIVE: CASE EVENT DATE: 20190615
